FAERS Safety Report 11249095 (Version 1)
Quarter: 2015Q3

REPORT INFORMATION
  Report Type: Spontaneous
  Country: US (occurrence: US)
  Receive Date: 20150708
  Receipt Date: 20150708
  Transmission Date: 20151125
  Serious: No
  Sender: FDA-Public Use
  Company Number: US-ELI_LILLY_AND_COMPANY-US200810005790

PATIENT
  Age: 71 Year
  Sex: Female

DRUGS (12)
  1. COZAAR [Concomitant]
     Active Substance: LOSARTAN POTASSIUM
  2. MACRODANTIN [Concomitant]
     Active Substance: NITROFURANTOIN
  3. ALIMTA [Suspect]
     Active Substance: PEMETREXED DISODIUM
     Indication: LUNG ADENOCARCINOMA
  4. TARCEVA [Concomitant]
     Active Substance: ERLOTINIB HYDROCHLORIDE
  5. TOPROL XL [Concomitant]
     Active Substance: METOPROLOL SUCCINATE
  6. TAXOL [Concomitant]
     Active Substance: PACLITAXEL
  7. AVASTIN [Concomitant]
     Active Substance: BEVACIZUMAB
  8. FOLIC ACID. [Concomitant]
     Active Substance: FOLIC ACID
     Dosage: UNK, DAILY (1/D)
  9. DECADRON [Concomitant]
     Active Substance: DEXAMETHASONE
  10. CARBOPLATIN. [Concomitant]
     Active Substance: CARBOPLATIN
  11. VITAMIN B12 [Concomitant]
     Active Substance: CYANOCOBALAMIN
     Dosage: UNK, OTHER
  12. PREDNISONE. [Concomitant]
     Active Substance: PREDNISONE

REACTIONS (5)
  - Nausea [Recovered/Resolved]
  - Cystitis [Recovered/Resolved]
  - Asthenia [Not Recovered/Not Resolved]
  - Depression [Not Recovered/Not Resolved]
  - Pain [Not Recovered/Not Resolved]
